FAERS Safety Report 4359891-5 (Version None)
Quarter: 2004Q2

REPORT INFORMATION
  Report Type: 
  Country: None (occurrence: None)
  Receive Date: 20040513
  Receipt Date: 20040430
  Transmission Date: 20050107
  Serious: Yes (Death)
  Sender: FDA-Public Use
  Company Number: 206309

PATIENT
  Age: 75 Year
  Sex: Male

DRUGS (9)
  1. ACTIVASE [Suspect]
     Dosage: 100 MG, INTRAVENOUS
     Route: 042
  2. ALPRAZOLAM [Concomitant]
  3. ASPIRIN [Concomitant]
  4. METOPROLOL TARTRATE [Concomitant]
  5. MORPHINE [Concomitant]
  6. NAPROXEN [Concomitant]
  7. NITROGLYCERIN [Concomitant]
  8. VITAMINS (VITAMINS NOS) [Concomitant]
  9. ZANTAC [Concomitant]

REACTIONS (7)
  - BRADYCARDIA [None]
  - CARDIAC ARREST [None]
  - CARDIAC TAMPONADE [None]
  - CHEST PAIN [None]
  - HYPOTENSION [None]
  - LOSS OF CONSCIOUSNESS [None]
  - PALLOR [None]
